FAERS Safety Report 13917651 (Version 1)
Quarter: 2017Q3

REPORT INFORMATION
  Report Type: Spontaneous
  Country: US (occurrence: US)
  Receive Date: 20170829
  Receipt Date: 20170829
  Transmission Date: 20171127
  Serious: Yes (Death, Other)
  Sender: FDA-Public Use
  Company Number: US-SA-2017SA156852

PATIENT
  Sex: Female

DRUGS (3)
  1. AUBAGIO [Suspect]
     Active Substance: TERIFLUNOMIDE
     Indication: MULTIPLE SCLEROSIS
     Route: 048
     Dates: start: 201508
  2. LASIX [Concomitant]
     Active Substance: FUROSEMIDE
     Dosage: STRENGTH: 40 MG
     Route: 065
  3. ROBAXIN [Concomitant]
     Active Substance: METHOCARBAMOL
     Dosage: STRENGTH: 500 MG
     Route: 065

REACTIONS (7)
  - Dyspnoea [Fatal]
  - Fluid overload [Fatal]
  - Joint swelling [Fatal]
  - Dialysis [Unknown]
  - Unevaluable event [Unknown]
  - Chronic obstructive pulmonary disease [Unknown]
  - Cardiac failure congestive [Unknown]
